FAERS Safety Report 21415598 (Version 1)
Quarter: 2022Q4

REPORT INFORMATION
  Report Type: Spontaneous
  Country: None (occurrence: US)
  Receive Date: 20221006
  Receipt Date: 20221006
  Transmission Date: 20230113
  Serious: No
  Sender: FDA-Public Use
  Company Number: US-Ajanta Pharma USA Inc.-2133509

PATIENT
  Age: 71 Year
  Sex: Female
  Weight: 77.273 kg

DRUGS (5)
  1. CHOLESTYRAMINE [Suspect]
     Active Substance: CHOLESTYRAMINE
     Indication: Colectomy
     Route: 048
     Dates: start: 2022
  2. VITAMIN D [Concomitant]
     Active Substance: VITAMIN D NOS
  3. FISH OIL [Concomitant]
     Active Substance: FISH OIL
  4. ROPINIROLE [Concomitant]
     Active Substance: ROPINIROLE
  5. PROGESTERONE [Concomitant]
     Active Substance: PROGESTERONE

REACTIONS (9)
  - Throat irritation [Not Recovered/Not Resolved]
  - Foreign body in throat [Not Recovered/Not Resolved]
  - Foreign body in mouth [Not Recovered/Not Resolved]
  - Product preparation error [Not Recovered/Not Resolved]
  - Product use complaint [Not Recovered/Not Resolved]
  - Product taste abnormal [Not Recovered/Not Resolved]
  - Product physical consistency issue [Not Recovered/Not Resolved]
  - Product substitution issue [Not Recovered/Not Resolved]
  - Off label use [Not Recovered/Not Resolved]

NARRATIVE: CASE EVENT DATE: 20220101
